FAERS Safety Report 9668817 (Version 1)
Quarter: 2013Q4

REPORT INFORMATION
  Report Type: Spontaneous
  Country: US (occurrence: None)
  Receive Date: 20131104
  Receipt Date: 20131104
  Transmission Date: 20140711
  Serious: No
  Sender: FDA-Public Use
  Company Number: None

PATIENT
  Age: 58 Year
  Sex: Female
  Weight: 60.78 kg

DRUGS (1)
  1. OXCARBAZEPIN [Suspect]
     Indication: GLOSSOPHARYNGEAL NEURALGIA
     Dosage: TITRAITED TWICE DAILY TAKEN BY MOUTH
     Route: 048
     Dates: start: 20130808, end: 20131005

REACTIONS (14)
  - Nausea [None]
  - Dysgeusia [None]
  - Weight increased [None]
  - Local swelling [None]
  - Headache [None]
  - Hiccups [None]
  - Cognitive disorder [None]
  - Vision blurred [None]
  - Constipation [None]
  - Cold sweat [None]
  - Aphasia [None]
  - Dysuria [None]
  - Feeling abnormal [None]
  - No therapeutic response [None]
